FAERS Safety Report 4675618-1 (Version None)
Quarter: 2005Q2

REPORT INFORMATION
  Report Type: 
  Country: None (occurrence: None)
  Receive Date: 20050525
  Receipt Date: 20050512
  Transmission Date: 20051028
  Serious: Yes (Hospitalization)
  Sender: FDA-Public Use
  Company Number: 2005AD000040

PATIENT
  Age: 43 Year
  Sex: Female

DRUGS (2)
  1. CEPHALEXIN CAPSULES (CEPHALEXIN CAPSULES) [Suspect]
     Indication: TOOTHACHE
     Dates: start: 20041209
  2. METHADONE [Concomitant]

REACTIONS (4)
  - ANXIETY [None]
  - DYSPNOEA [None]
  - PANIC ATTACK [None]
  - WRONG DRUG ADMINISTERED [None]
